FAERS Safety Report 16747819 (Version 2)
Quarter: 2019Q4

REPORT INFORMATION
  Report Type: Spontaneous
  Country: JP (occurrence: JP)
  Receive Date: 20190827
  Receipt Date: 20191213
  Transmission Date: 20200122
  Serious: Yes (Other)
  Sender: FDA-Public Use
  Company Number: PHJP2019JP010839

PATIENT
  Age: 63 Year
  Sex: Female

DRUGS (1)
  1. ZOMETA [Suspect]
     Active Substance: ZOLEDRONIC ACID
     Indication: METASTASES TO BONE
     Dosage: UNK
     Route: 041

REACTIONS (7)
  - Toothache [Unknown]
  - Bone swelling [Unknown]
  - Osteonecrosis of jaw [Unknown]
  - Alveolar bone resorption [Unknown]
  - Abscess jaw [Unknown]
  - Exposed bone in jaw [Unknown]
  - Bone sequestrum [Unknown]
